FAERS Safety Report 20935306 (Version 2)
Quarter: 2022Q2

REPORT INFORMATION
  Report Type: Spontaneous
  Country: JP (occurrence: JP)
  Receive Date: 20220609
  Receipt Date: 20220621
  Transmission Date: 20220720
  Serious: Yes (Other)
  Sender: FDA-Public Use
  Company Number: JP-SUN PHARMACEUTICAL INDUSTRIES LTD-2022R1-338952

PATIENT
  Age: 46 Year
  Sex: Male

DRUGS (6)
  1. OXALIPLATIN [Suspect]
     Active Substance: OXALIPLATIN
     Indication: Colon cancer
     Dosage: 140 MILLIGRAM, DAILY
     Route: 042
     Dates: start: 200806, end: 200812
  2. OXALIPLATIN [Suspect]
     Active Substance: OXALIPLATIN
     Indication: Metastasis
  3. FLUOROURACIL [Suspect]
     Active Substance: FLUOROURACIL
     Indication: Colon cancer
     Dosage: 650 MILLIGRAM
     Route: 042
     Dates: start: 200806, end: 200812
  4. FLUOROURACIL [Suspect]
     Active Substance: FLUOROURACIL
     Indication: Metastasis
     Dosage: 3500 MILLIGRAM, DAILY
     Route: 042
     Dates: start: 200806, end: 200812
  5. LEUCOVORIN [Suspect]
     Active Substance: LEUCOVORIN
     Indication: Colon cancer
     Dosage: 340 MILLIGRAM, DAILY
     Route: 042
  6. LEUCOVORIN [Suspect]
     Active Substance: LEUCOVORIN
     Indication: Metastasis

REACTIONS (3)
  - Splenomegaly [Unknown]
  - Thrombocytopenia [Unknown]
  - Non-cirrhotic portal hypertension [Unknown]
